FAERS Safety Report 5676721-X (Version None)
Quarter: 2008Q2

REPORT INFORMATION
  Report Type: 
  Country: None (occurrence: None)
  Receive Date: 20080311
  Receipt Date: 20071219
  Transmission Date: 20081010
  Serious: No
  Sender: FDA-Public Use
  Company Number: 002#2#2007-00394

PATIENT
  Age: 75 Year
  Sex: Male
  Weight: 104.3273 kg

DRUGS (5)
  1. NEUPRO [Suspect]
     Indication: RESTLESS LEGS SYNDROME
     Dosage: 2MG/24H,1 IN 1 D,TRANSDERMAL
     Route: 062
     Dates: start: 20071214
  2. REQUIP [Concomitant]
  3. GLIPIZIDE [Concomitant]
  4. MORPHINE [Concomitant]
  5. TEMAZEPAM [Concomitant]

REACTIONS (2)
  - ABNORMAL DREAMS [None]
  - OFF LABEL USE [None]
